FAERS Safety Report 7131983-7 (Version None)
Quarter: 2010Q4

REPORT INFORMATION
  Report Type: 
  Country: None (occurrence: None)
  Receive Date: 20101124
  Receipt Date: 20101124
  Transmission Date: 20110411
  Serious: Yes (Other)
  Sender: FDA-Public Use
  Company Number: None

PATIENT
  Age: 73 Year
  Sex: Female

DRUGS (1)
  1. MELOXICAM [Suspect]
     Indication: ARTHRALGIA
     Dosage: 7.5MG 1 A DAY ORAL
     Route: 048
     Dates: start: 20101001

REACTIONS (1)
  - FLUID RETENTION [None]
